FAERS Safety Report 9774976 (Version 1)
Quarter: 2013Q4

REPORT INFORMATION
  Report Type: Spontaneous
  Country: US (occurrence: US)
  Receive Date: 20131220
  Receipt Date: 20131220
  Transmission Date: 20140711
  Serious: No
  Sender: FDA-Public Use
  Company Number: US-GLAXOSMITHKLINE-A1026927A

PATIENT
  Age: 62 Year
  Sex: Male

DRUGS (4)
  1. AVODART [Suspect]
     Indication: BENIGN PROSTATIC HYPERPLASIA
     Dosage: 1CAP PER DAY
     Route: 048
     Dates: start: 201303
  2. LASIX [Concomitant]
  3. SPIRONOLACTONE [Concomitant]
  4. ZESTRIL [Concomitant]

REACTIONS (5)
  - Nausea [Not Recovered/Not Resolved]
  - Dysgeusia [Unknown]
  - Diarrhoea [Unknown]
  - Depression [Unknown]
  - Dizziness [Unknown]
